FAERS Safety Report 18504147 (Version 2)
Quarter: 2021Q2

REPORT INFORMATION
  Report Type: Report from Study
  Country: CZ (occurrence: CZ)
  Receive Date: 20201114
  Receipt Date: 20210517
  Transmission Date: 20210717
  Serious: Yes (Hospitalization)
  Sender: FDA-Public Use
  Company Number: CZ-TAKEDA-2020TUS049974

PATIENT
  Sex: Male

DRUGS (1)
  1. IDURSULFASE [Suspect]
     Active Substance: IDURSULFASE
     Indication: MUCOPOLYSACCHARIDOSIS II
     Dosage: 0.39 MILLIGRAM/KILOGRAM, 1/WEEK
     Route: 042
     Dates: start: 20071001

REACTIONS (1)
  - Malnutrition [Recovered/Resolved]

NARRATIVE: CASE EVENT DATE: 202003
